FAERS Safety Report 17172226 (Version 1)
Quarter: 2019Q4

REPORT INFORMATION
  Report Type: Report from Study
  Country: US (occurrence: US)
  Receive Date: 20191218
  Receipt Date: 20191218
  Transmission Date: 20200122
  Serious: Yes (Other)
  Sender: FDA-Public Use
  Company Number: PHHY2016US160319

PATIENT
  Age: 32 Year
  Sex: Female

DRUGS (1)
  1. GILENYA [Suspect]
     Active Substance: FINGOLIMOD HYDROCHLORIDE
     Indication: MULTIPLE SCLEROSIS
     Dosage: UNK, QD
     Route: 048

REACTIONS (8)
  - Stasis dermatitis [Unknown]
  - Affect lability [Unknown]
  - Headache [Unknown]
  - Syncope [Unknown]
  - Solar lentigo [Unknown]
  - Fibrous histiocytoma [Unknown]
  - Melanocytic naevus [Unknown]
  - Lentigo [Unknown]

NARRATIVE: CASE EVENT DATE: 20151124
